FAERS Safety Report 6828699-0 (Version None)
Quarter: 2010Q3

REPORT INFORMATION
  Report Type: 
  Country: None (occurrence: None)
  Receive Date: 20100709
  Receipt Date: 20070218
  Transmission Date: 20110219
  Serious: No
  Sender: FDA-Public Use
  Company Number: US-PFIZER INC-2007013301

PATIENT
  Sex: Female
  Weight: 83.01 kg

DRUGS (10)
  1. CHANTIX [Suspect]
     Indication: SMOKING CESSATION THERAPY
     Dates: start: 20070201
  2. ACETYLSALICYLIC ACID [Concomitant]
  3. ZOLOFT [Concomitant]
     Indication: DEPRESSION
  4. PERPHENAZINE [Concomitant]
     Indication: DEPRESSION
  5. ACTOS [Concomitant]
  6. ATENOLOL [Concomitant]
  7. METFORMIN HCL [Concomitant]
  8. INSULIN [Concomitant]
  9. ACTONEL [Concomitant]
  10. LESCOL XL [Concomitant]
     Indication: BLOOD CHOLESTEROL

REACTIONS (2)
  - ANXIETY [None]
  - DRUG DOSE OMISSION [None]
